FAERS Safety Report 6602661-5 (Version None)
Quarter: 2010Q1

REPORT INFORMATION
  Report Type: 
  Country: None (occurrence: None)
  Receive Date: 20100225
  Receipt Date: 20100210
  Transmission Date: 20100710
  Serious: Yes (Other)
  Sender: FDA-Public Use
  Company Number: US-BRISTOL-MYERS SQUIBB COMPANY-14972582

PATIENT
  Age: 5 Decade
  Sex: Female

DRUGS (2)
  1. ONGLYZA [Suspect]
  2. AVANDAMET [Concomitant]

REACTIONS (1)
  - CARPAL TUNNEL SYNDROME [None]
